FAERS Safety Report 13144905 (Version 1)
Quarter: 2017Q1

REPORT INFORMATION
  Report Type: Spontaneous
  Country: SK (occurrence: SK)
  Receive Date: 20170124
  Receipt Date: 20170124
  Transmission Date: 20170428
  Serious: Yes (Life-Threatening, Hospitalization, Other)
  Sender: FDA-Public Use
  Company Number: SK-ROCHE-1875062

PATIENT
  Sex: Female

DRUGS (7)
  1. GEMCITABINE [Suspect]
     Active Substance: GEMCITABINE\GEMCITABINE HYDROCHLORIDE
     Indication: SQUAMOUS CELL CARCINOMA OF THE CERVIX
     Dosage: 6 CYCLES
     Route: 065
     Dates: start: 201004, end: 201008
  2. AVASTIN [Suspect]
     Active Substance: BEVACIZUMAB
     Indication: SQUAMOUS CELL CARCINOMA OF THE CERVIX
     Route: 065
     Dates: start: 201101, end: 20110706
  3. CISPLATIN. [Suspect]
     Active Substance: CISPLATIN
     Indication: SQUAMOUS CELL CARCINOMA OF THE CERVIX
     Route: 065
     Dates: start: 201004, end: 201008
  4. CISPLATIN. [Suspect]
     Active Substance: CISPLATIN
     Route: 065
     Dates: start: 201101
  5. CARBOPLATIN. [Suspect]
     Active Substance: CARBOPLATIN
     Indication: SQUAMOUS CELL CARCINOMA OF THE CERVIX
     Route: 065
     Dates: start: 201101
  6. TOPOTECAN [Suspect]
     Active Substance: TOPOTECAN HYDROCHLORIDE
     Indication: SQUAMOUS CELL CARCINOMA OF THE CERVIX
     Route: 065
     Dates: start: 201101
  7. CISPLATIN. [Suspect]
     Active Substance: CISPLATIN
     Route: 065
     Dates: start: 201207

REACTIONS (8)
  - Intestinal obstruction [Unknown]
  - Anaemia [Unknown]
  - Haematotoxicity [Unknown]
  - Female genital tract fistula [Recovered/Resolved]
  - Polyneuropathy [Recovered/Resolved with Sequelae]
  - Neutropenia [Unknown]
  - Hydronephrosis [Recovered/Resolved]
  - Ileus [Unknown]

NARRATIVE: CASE EVENT DATE: 201011
